FAERS Safety Report 4748880-4 (Version None)
Quarter: 2005Q3

REPORT INFORMATION
  Report Type: 
  Country: None (occurrence: None)
  Receive Date: 20050817
  Receipt Date: 20050805
  Transmission Date: 20060218
  Serious: Yes (Hospitalization)
  Sender: FDA-Public Use
  Company Number: 2005112421

PATIENT
  Sex: Male
  Weight: 81.6475 kg

DRUGS (1)
  1. GEODON [Suspect]
     Indication: MAJOR DEPRESSION
     Dates: start: 20050101

REACTIONS (2)
  - ABNORMAL BEHAVIOUR [None]
  - ECONOMIC PROBLEM [None]
